FAERS Safety Report 7672237-X (Version None)
Quarter: 2011Q3

REPORT INFORMATION
  Report Type: 
  Country: None (occurrence: None)
  Receive Date: 20110809
  Receipt Date: 20110805
  Transmission Date: 20111222
  Serious: Yes (Death, Other)
  Sender: FDA-Public Use
  Company Number: PHEH2010US02407

PATIENT
  Sex: Female

DRUGS (13)
  1. RADIATION THERAPY [Concomitant]
  2. DILTIAZEM [Concomitant]
     Indication: HYPERTENSION
  3. ZOMETA [Suspect]
  4. FASLODEX [Concomitant]
  5. BISACODYL [Concomitant]
  6. LANOXIN [Concomitant]
  7. FUROSEMIDE [Concomitant]
  8. COREG [Concomitant]
     Indication: CARDIAC FAILURE
  9. LOVASTATIN [Concomitant]
  10. LOVASTATIN [Concomitant]
  11. WARFARIN SODIUM [Concomitant]
  12. PLETAL [Concomitant]
  13. PLAVIX [Concomitant]

REACTIONS (22)
  - OSTEONECROSIS OF JAW [None]
  - MYOCARDIAL INFARCTION [None]
  - CARDIOMEGALY [None]
  - CARDIAC FAILURE [None]
  - GENERAL PHYSICAL HEALTH DETERIORATION [None]
  - PLEURAL EFFUSION [None]
  - CHRONIC OBSTRUCTIVE PULMONARY DISEASE [None]
  - OSTEOARTHRITIS [None]
  - PANCREATIC CYST [None]
  - DEATH [None]
  - ANXIETY [None]
  - CORONARY ARTERY DISEASE [None]
  - ARTERIOSCLEROSIS CORONARY ARTERY [None]
  - FATIGUE [None]
  - PAIN [None]
  - DECREASED INTEREST [None]
  - SPLENIC GRANULOMA [None]
  - RENAL CYST [None]
  - MACULAR DEGENERATION [None]
  - HYPERTENSION [None]
  - METASTASES TO BONE [None]
  - ATELECTASIS [None]
